FAERS Safety Report 14702987 (Version 1)
Quarter: 2018Q2

REPORT INFORMATION
  Report Type: Spontaneous
  Country: FR (occurrence: FR)
  Receive Date: 20180402
  Receipt Date: 20180402
  Transmission Date: 20180711
  Serious: Yes (Other)
  Sender: FDA-Public Use
  Company Number: FR-MERCK KGAA-2044873

PATIENT
  Age: 52 Year
  Sex: Female

DRUGS (1)
  1. NOVOTHYROX [Suspect]
     Active Substance: LEVOTHYROXINE SODIUM
     Indication: PRODUCT USED FOR UNKNOWN INDICATION
     Dates: start: 201703, end: 2017

REACTIONS (21)
  - Palpitations [Recovered/Resolved]
  - Blood thyroid stimulating hormone decreased [None]
  - Hyperthyroidism [Recovering/Resolving]
  - Mood altered [Recovering/Resolving]
  - Headache [Recovered/Resolved]
  - Aspartate aminotransferase increased [None]
  - Irritability [Recovering/Resolving]
  - Feeling abnormal [Recovering/Resolving]
  - Personality change [Recovering/Resolving]
  - Decreased interest [Recovering/Resolving]
  - Fatigue [Recovering/Resolving]
  - C-reactive protein increased [None]
  - Disturbance in attention [Recovering/Resolving]
  - Blepharospasm [Recovering/Resolving]
  - Aggression [Recovered/Resolved]
  - Insomnia [Recovered/Resolved]
  - Crying [Recovering/Resolving]
  - Dizziness [Recovered/Resolved]
  - Alanine aminotransferase increased [None]
  - Impatience [Recovering/Resolving]
  - Blepharospasm [Recovered/Resolved]

NARRATIVE: CASE EVENT DATE: 2017
